FAERS Safety Report 5326812-8 (Version None)
Quarter: 2007Q2

REPORT INFORMATION
  Report Type: 
  Country: None (occurrence: None)
  Receive Date: 20070516
  Receipt Date: 20070508
  Transmission Date: 20071010
  Serious: Yes (Other)
  Sender: FDA-Public Use
  Company Number: NL-PFIZER INC-2007038061

PATIENT
  Sex: Male
  Weight: 29 kg

DRUGS (3)
  1. DETRUSITOL [Suspect]
     Indication: POLLAKIURIA
     Route: 048
  2. VENTOLIN [Concomitant]
  3. SYMBICORT [Concomitant]

REACTIONS (5)
  - AGGRESSION [None]
  - CONFUSIONAL STATE [None]
  - DISTURBANCE IN ATTENTION [None]
  - EMOTIONAL DISORDER [None]
  - SOMNOLENCE [None]
